FAERS Safety Report 4554370-4 (Version None)
Quarter: 2004Q4

REPORT INFORMATION
  Report Type: 
  Country: None (occurrence: None)
  Receive Date: 20041230
  Receipt Date: 20040722
  Transmission Date: 20050328
  Serious: Yes (Hospitalization)
  Sender: FDA-Public Use
  Company Number: 04-07-1059

PATIENT
  Age: 37 Year
  Sex: Male

DRUGS (1)
  1. CLOZAPINE [Suspect]
     Dosage: 250-500MG QD ORAL
     Route: 048
     Dates: start: 20030701, end: 20040801

REACTIONS (1)
  - PULMONARY EMBOLISM [None]
